FAERS Safety Report 24543749 (Version 2)
Quarter: 2024Q4

REPORT INFORMATION
  Report Type: Spontaneous
  Country: US (occurrence: US)
  Receive Date: 20241024
  Receipt Date: 20241108
  Transmission Date: 20250115
  Serious: Yes (Hospitalization)
  Sender: TEVA
  Company Number: US-TEVA-VS-3255089

PATIENT
  Age: 61 Year
  Sex: Male

DRUGS (1)
  1. FLUOROURACIL [Suspect]
     Active Substance: FLUOROURACIL
     Indication: Rectal adenocarcinoma
     Dosage: 5-FLUOROURACIL
     Route: 065

REACTIONS (2)
  - Arteriospasm coronary [Recovered/Resolved]
  - Myocardial infarction [Recovered/Resolved]
